FAERS Safety Report 13651056 (Version 2)
Quarter: 2017Q3

REPORT INFORMATION
  Report Type: Spontaneous
  Country: JP (occurrence: JP)
  Receive Date: 20170614
  Receipt Date: 20170720
  Transmission Date: 20171127
  Serious: No
  Sender: FDA-Public Use
  Company Number: JP-UCBSA-2017022497

PATIENT
  Age: 74 Year
  Sex: Male
  Weight: 48 kg

DRUGS (10)
  1. MIYA-BM [Concomitant]
     Active Substance: CLOSTRIDIUM BUTYRICUM SPORES STRAIN M-55
     Indication: DIARRHOEA
     Dosage: 1 G, 3X/DAY (TID)
     Route: 048
     Dates: start: 20170515
  2. SODIUM CHLORIDE. [Concomitant]
     Active Substance: SODIUM CHLORIDE
     Indication: HYPERTENSION
     Dosage: 1 G, 3X/DAY (TID)
     Route: 048
     Dates: start: 20170531
  3. VIMPAT [Suspect]
     Active Substance: LACOSAMIDE
     Indication: EPILEPSY
     Dosage: 50 MG, 2X/DAY (BID)
     Route: 048
     Dates: start: 20170605, end: 20170606
  4. DEPAKENE [Concomitant]
     Active Substance: VALPROIC ACID
     Indication: EPILEPSY
     Dosage: 200 MG, 2X/DAY (BID)
     Route: 048
     Dates: start: 20170531
  5. LANTUS [Concomitant]
     Active Substance: INSULIN GLARGINE
     Indication: HYPERTENSION
     Dosage: 5 IU, ONCE DAILY (QD)
     Route: 042
     Dates: start: 20170515
  6. RISPERIDONE. [Concomitant]
     Active Substance: RISPERIDONE
     Indication: INSOMNIA
     Dosage: 0.5 ML, ONCE DAILY (QD)
     Route: 048
     Dates: start: 20170531
  7. AMLODIPINE BESILATE [Concomitant]
     Active Substance: AMLODIPINE BESYLATE
     Indication: HYPERTENSION
     Dosage: 2.5 MG, ONCE DAILY (QD)
     Route: 048
     Dates: start: 20170530
  8. FUROSEMIDE. [Concomitant]
     Active Substance: FUROSEMIDE
     Indication: HYPERTENSION
     Dosage: 10 MG, ONCE DAILY (QD)
     Route: 048
     Dates: start: 20170531
  9. VESICARE [Concomitant]
     Active Substance: SOLIFENACIN SUCCINATE
     Indication: NEUROGENIC BLADDER
     Dosage: 2.5 MG, 2X/DAY (BID)
     Route: 048
     Dates: start: 20170515
  10. NOVORAPID [Concomitant]
     Active Substance: INSULIN ASPART
     Indication: HYPERTENSION
     Dosage: 7 IU, 3X/DAY (TID)
     Route: 042
     Dates: start: 20170515

REACTIONS (1)
  - Bradycardia [Recovered/Resolved]

NARRATIVE: CASE EVENT DATE: 20170606
